FAERS Safety Report 9196267 (Version 2)
Quarter: 2013Q2

REPORT INFORMATION
  Report Type: Report from Study
  Country: IT (occurrence: IT)
  Receive Date: 20130328
  Receipt Date: 20130403
  Transmission Date: 20140414
  Serious: Yes (Hospitalization, Other)
  Sender: FDA-Public Use
  Company Number: IT-PFIZER INC-2013097127

PATIENT
  Age: 69 Year
  Sex: Female
  Weight: 51 kg

DRUGS (5)
  1. CRIZOTINIB [Suspect]
     Indication: LUNG NEOPLASM MALIGNANT
     Dosage: 250 MG, 2X/DAY
     Route: 048
     Dates: start: 20130128, end: 20130316
  2. DIFLUCAN [Concomitant]
     Indication: FUNGAL INFECTION
     Dosage: 100 MG, 1X/DAY
     Route: 048
     Dates: start: 20130218
  3. LIMPIDEX [Concomitant]
     Indication: PROPHYLAXIS
     Dosage: 150 MG, 1X/DAY
     Route: 048
     Dates: start: 20130218
  4. DEXAMETHASONE [Concomitant]
     Indication: PAIN
     Dosage: 100 MG, 2X/DAY
     Route: 048
     Dates: start: 20130128
  5. DEXAMETHASONE [Concomitant]
     Indication: INFLAMMATION

REACTIONS (3)
  - Asthenia [Recovering/Resolving]
  - Vomiting [Recovered/Resolved]
  - Blood potassium decreased [Recovered/Resolved]
